FAERS Safety Report 4763907-1 (Version None)
Quarter: 2005Q3

REPORT INFORMATION
  Report Type: 
  Country: None (occurrence: None)
  Receive Date: 20050906
  Receipt Date: 20050826
  Transmission Date: 20060218
  Serious: Yes (Hospitalization)
  Sender: FDA-Public Use
  Company Number: 2005ST000080

PATIENT
  Age: 50 Year
  Sex: Male

DRUGS (2)
  1. ZEGERID [Suspect]
     Indication: GASTROOESOPHAGEAL REFLUX DISEASE
     Dosage: 40 MG; QD; PO
     Route: 048
     Dates: start: 20050822, end: 20050822
  2. VITAMINS [Concomitant]

REACTIONS (5)
  - BRADYCARDIA [None]
  - DIZZINESS [None]
  - HOT FLUSH [None]
  - HYPERHIDROSIS [None]
  - LOSS OF CONSCIOUSNESS [None]
